FAERS Safety Report 20195553 (Version 2)
Quarter: 2022Q1

REPORT INFORMATION
  Report Type: Spontaneous
  Country: CA (occurrence: CA)
  Receive Date: 20211216
  Receipt Date: 20220105
  Transmission Date: 20220423
  Serious: Yes (Other)
  Sender: FDA-Public Use
  Company Number: CA-TEVA-2021-CA-1986952

PATIENT
  Age: 27 Year
  Sex: Female

DRUGS (1)
  1. SULFAMETHOXAZOLE\TRIMETHOPRIM [Suspect]
     Active Substance: SULFAMETHOXAZOLE\TRIMETHOPRIM
     Indication: Product used for unknown indication
     Route: 065

REACTIONS (8)
  - Drug hypersensitivity [Unknown]
  - Pseudohyponatraemia [Unknown]
  - Dyslipidaemia [Recovered/Resolved]
  - Xanthoma [Recovered/Resolved]
  - Hepatitis fulminant [Unknown]
  - Cholestasis [Unknown]
  - Xanthoma [Recovered/Resolved]
  - Multi-organ disorder [Unknown]
